FAERS Safety Report 5018192-2 (Version None)
Quarter: 2006Q2

REPORT INFORMATION
  Report Type: 
  Country: None (occurrence: None)
  Receive Date: 20060530
  Receipt Date: 20060516
  Transmission Date: 20061013
  Serious: Yes (Other)
  Sender: FDA-Public Use
  Company Number: 2006065364

PATIENT
  Age: 92 Year
  Sex: Male
  Weight: 90 kg

DRUGS (3)
  1. CELEBREX [Suspect]
     Indication: CONDITION AGGRAVATED
     Dosage: 200 MG (100 MG, 2IN 1 D), ORAL
     Route: 048
     Dates: end: 20060318
  2. CELEBREX [Suspect]
     Indication: OSTEOARTHROPATHY
     Dosage: 200 MG (100 MG, 2IN 1 D), ORAL
     Route: 048
     Dates: end: 20060318
  3. CELEBREX [Suspect]
     Indication: PAIN
     Dosage: 200 MG (100 MG, 2IN 1 D), ORAL
     Route: 048
     Dates: end: 20060318

REACTIONS (1)
  - GRAND MAL CONVULSION [None]
